FAERS Safety Report 8990625 (Version 1)
Quarter: 2012Q4

REPORT INFORMATION
  Report Type: 
  Country: US (occurrence: US)
  Receive Date: 20121228
  Receipt Date: 20121228
  Transmission Date: 20130627
  Serious: Yes (Hospitalization)
  Sender: FDA-Public Use
  Company Number: US-SANOFI-AVENTIS-2012SA094102

PATIENT
  Age: 78 Year
  Sex: Male

DRUGS (4)
  1. LANTUS SOLOSTAR [Suspect]
     Indication: TYPE II DIABETES MELLITUS
     Dosage: varies
     Route: 058
     Dates: start: 201212, end: 201212
  2. LANTUS SOLOSTAR [Suspect]
     Indication: TYPE II DIABETES MELLITUS
     Dosage: varies
     Route: 058
     Dates: start: 201212
  3. SOLOSTAR [Suspect]
     Indication: TYPE II DIABETES MELLITUS
     Dates: start: 201212, end: 201212
  4. SOLOSTAR [Suspect]
     Indication: TYPE II DIABETES MELLITUS
     Dates: start: 201212

REACTIONS (4)
  - Chest discomfort [Unknown]
  - Haemorrhage [Unknown]
  - Blood glucose increased [Unknown]
  - Chest pain [Unknown]
